FAERS Safety Report 4659244-6 (Version None)
Quarter: 2005Q2

REPORT INFORMATION
  Report Type: 
  Country: None (occurrence: None)
  Receive Date: 20050510
  Receipt Date: 20050502
  Transmission Date: 20051028
  Serious: Yes (Death, Hospitalization, Other)
  Sender: FDA-Public Use
  Company Number: 163-20785-05030269

PATIENT
  Age: 71 Year
  Sex: Male

DRUGS (7)
  1. THALOMID [Suspect]
     Indication: MULTIPLE MYELOMA
     Dosage: 200 MG, DAILY, ORAL
     Route: 048
     Dates: start: 20030418, end: 20050101
  2. COUMADIN [Suspect]
     Indication: DEEP VEIN THROMBOSIS
     Dates: start: 20030101
  3. PREDNISONE [Concomitant]
  4. QUININE SULFATE [Concomitant]
  5. NORVASC [Concomitant]
  6. TYROSINE (TYROSINE) [Concomitant]
  7. ZOCOR [Concomitant]

REACTIONS (28)
  - ABDOMINAL PAIN [None]
  - AMYLOIDOSIS [None]
  - ARTHRALGIA [None]
  - ARTHRITIS [None]
  - AZOTAEMIA [None]
  - BACK PAIN [None]
  - CONFUSIONAL STATE [None]
  - DEHYDRATION [None]
  - DISEASE PROGRESSION [None]
  - DRUG TOXICITY [None]
  - FATIGUE [None]
  - HYPOAESTHESIA [None]
  - INTERNATIONAL NORMALISED RATIO INCREASED [None]
  - JOINT EFFUSION [None]
  - LETHARGY [None]
  - LUNG INFILTRATION [None]
  - MENTAL STATUS CHANGES [None]
  - NERVE COMPRESSION [None]
  - OSTEOARTHRITIS [None]
  - PAIN IN EXTREMITY [None]
  - PARAESTHESIA [None]
  - PULMONARY THROMBOSIS [None]
  - RENAL FAILURE CHRONIC [None]
  - ROTATOR CUFF SYNDROME [None]
  - SHOULDER PAIN [None]
  - SKIN ULCER [None]
  - TACHYCARDIA [None]
  - WEIGHT DECREASED [None]
